FAERS Safety Report 13989708 (Version 1)
Quarter: 2017Q3

REPORT INFORMATION
  Report Type: Spontaneous
  Country: ES (occurrence: ES)
  Receive Date: 20170920
  Receipt Date: 20170920
  Transmission Date: 20171128
  Serious: Yes (Other)
  Sender: FDA-Public Use
  Company Number: ES-BAYER-2017-177219

PATIENT
  Age: 25 Year
  Sex: Female

DRUGS (1)
  1. JAYDESS [Suspect]
     Active Substance: LEVONORGESTREL
     Dosage: 14 MCG/24HR, CONT
     Route: 015
     Dates: start: 20170911, end: 20170912

REACTIONS (7)
  - Ovarian vein thrombosis [Unknown]
  - Ovarian necrosis [Unknown]
  - White blood cell count increased [Unknown]
  - Pyrexia [Unknown]
  - Anaemia [Unknown]
  - Abdominal pain [Unknown]
  - Blood lactic acid increased [Unknown]

NARRATIVE: CASE EVENT DATE: 20170912
